FAERS Safety Report 19203720 (Version 1)
Quarter: 2021Q2

REPORT INFORMATION
  Report Type: Spontaneous
  Country: US (occurrence: US)
  Receive Date: 20210503
  Receipt Date: 20210503
  Transmission Date: 20210717
  Serious: No
  Sender: FDA-Public Use
  Company Number: US-GRANULES-US-2021GRASPO00268

PATIENT
  Age: 43 Year
  Sex: Female
  Weight: 195 kg

DRUGS (4)
  1. GLIPIZIDE. [Concomitant]
     Active Substance: GLIPIZIDE
     Indication: DIABETES MELLITUS
     Route: 065
     Dates: start: 20210420, end: 20210421
  2. IBUPROFEN. [Interacting]
     Active Substance: IBUPROFEN
     Indication: PAIN
     Dosage: 2 TABLETS
     Route: 065
  3. INSULIN [Concomitant]
     Active Substance: INSULIN NOS
     Indication: PAIN
     Route: 065
     Dates: start: 20210420, end: 20210421
  4. METFORMIN HCL [Suspect]
     Active Substance: METFORMIN HYDROCHLORIDE
     Indication: DIABETES MELLITUS
     Route: 048
     Dates: start: 20210420, end: 20210421

REACTIONS (4)
  - Feeling abnormal [Not Recovered/Not Resolved]
  - Eye pain [Unknown]
  - Migraine [Recovered/Resolved]
  - Paraesthesia [Not Recovered/Not Resolved]

NARRATIVE: CASE EVENT DATE: 20210420
